FAERS Safety Report 23220083 (Version 1)
Quarter: 2023Q4

REPORT INFORMATION
  Report Type: Spontaneous
  Country: IT (occurrence: IT)
  Receive Date: 20231122
  Receipt Date: 20231122
  Transmission Date: 20240109
  Serious: Yes (Other)
  Sender: FDA-Public Use
  Company Number: None

PATIENT
  Age: 11 Year
  Sex: Female
  Weight: 53 kg

DRUGS (3)
  1. GABAPENTIN [Suspect]
     Active Substance: GABAPENTIN
     Indication: Post herpetic neuralgia
     Dosage: 400 MILLIGRAM DAILY;
     Dates: start: 20231023, end: 20231025
  2. ACYCLOVIR SODIUM [Suspect]
     Active Substance: ACYCLOVIR SODIUM
     Indication: Herpes zoster
     Dosage: 1500 MILLIGRAM DAILY;
     Dates: start: 20231019, end: 20231024
  3. OMEPRAZOLE MYLAN GENERICS ITALY [Concomitant]
     Indication: Prophylaxis
     Dosage: 40 MILLIGRAM DAILY;
     Dates: start: 20231026, end: 20231027

REACTIONS (1)
  - Renal failure [Recovered/Resolved]

NARRATIVE: CASE EVENT DATE: 20231001
